FAERS Safety Report 11237650 (Version 3)
Quarter: 2015Q3

REPORT INFORMATION
  Report Type: Spontaneous
  Country: FR (occurrence: FR)
  Receive Date: 20150703
  Receipt Date: 20150710
  Transmission Date: 20151125
  Serious: Yes (Other)
  Sender: FDA-Public Use
  Company Number: FR-AMGEN-FRACT2015064553

PATIENT
  Age: 80 Year
  Sex: Female

DRUGS (1)
  1. PROLIA [Suspect]
     Active Substance: DENOSUMAB
     Indication: PRODUCT USED FOR UNKNOWN INDICATION
     Dosage: UNK
     Route: 065

REACTIONS (7)
  - Periodontitis [Unknown]
  - Tooth disorder [Unknown]
  - Tooth fracture [Unknown]
  - Osteonecrosis of jaw [Unknown]
  - Impaired healing [Recovered/Resolved]
  - Tooth infection [Recovered/Resolved]
  - Actinomycosis [Unknown]

NARRATIVE: CASE EVENT DATE: 201312
